FAERS Safety Report 19594924 (Version 2)
Quarter: 2021Q3

REPORT INFORMATION
  Report Type: Report from Study
  Country: US (occurrence: US)
  Receive Date: 20210722
  Receipt Date: 20210826
  Transmission Date: 20211014
  Serious: Yes (Hospitalization, Other)
  Sender: FDA-Public Use
  Company Number: US-BIOVITRUM-2021US6925

PATIENT
  Sex: Female

DRUGS (10)
  1. KINERET [Suspect]
     Active Substance: ANAKINRA
     Indication: STILL^S DISEASE
     Route: 058
  2. SENNA [Concomitant]
     Active Substance: SENNA LEAF\SENNOSIDES\SENNOSIDES A AND B
  3. PREVACID [Concomitant]
     Active Substance: LANSOPRAZOLE
  4. VISTARIL [Concomitant]
     Active Substance: HYDROXYZINE PAMOATE
  5. PREDNISONE. [Suspect]
     Active Substance: PREDNISONE
  6. PREDNISONE. [Concomitant]
     Active Substance: PREDNISONE
  7. KINERET [Suspect]
     Active Substance: ANAKINRA
     Route: 058
  8. NAPROXEN. [Concomitant]
     Active Substance: NAPROXEN
  9. LACTULOSE. [Concomitant]
     Active Substance: LACTULOSE
  10. FAMOTIDINE. [Concomitant]
     Active Substance: FAMOTIDINE

REACTIONS (7)
  - Injection site pruritus [Recovering/Resolving]
  - Swelling [Unknown]
  - Off label use [Not Recovered/Not Resolved]
  - Injection site bruising [Recovering/Resolving]
  - Injection site erythema [Recovering/Resolving]
  - Respiratory distress [Unknown]
  - Full blood count decreased [Unknown]
